FAERS Safety Report 16076995 (Version 1)
Quarter: 2019Q1

REPORT INFORMATION
  Report Type: Spontaneous
  Country: JP (occurrence: JP)
  Receive Date: 20190315
  Receipt Date: 20190315
  Transmission Date: 20190418
  Serious: Yes (Hospitalization)
  Sender: FDA-Public Use
  Company Number: JP-ELI_LILLY_AND_COMPANY-JP201808002180

PATIENT
  Age: 68 Year
  Sex: Male
  Weight: 53 kg

DRUGS (13)
  1. PACLITAXEL HOSPIRA [Suspect]
     Active Substance: PACLITAXEL
     Indication: GASTRIC CANCER RECURRENT
     Dosage: 110 MG, OTHER
     Route: 041
     Dates: start: 20180704, end: 20180801
  2. PRAZAXA [Concomitant]
     Active Substance: DABIGATRAN ETEXILATE MESYLATE
     Route: 048
  3. DEXART [Concomitant]
     Active Substance: DEXAMETHASONE SODIUM PHOSPHATE
     Dosage: UNK
     Route: 065
  4. FAMOTIDINE. [Concomitant]
     Active Substance: FAMOTIDINE
     Route: 065
  5. POLARAMINE [Concomitant]
     Active Substance: DEXCHLORPHENIRAMINE MALEATE
     Route: 065
  6. LOXOPROFEN [Concomitant]
     Active Substance: LOXOPROFEN
     Route: 048
  7. GRANISETRON [Concomitant]
     Active Substance: GRANISETRON
     Route: 042
  8. REBAMIPIDE [Concomitant]
     Active Substance: REBAMIPIDE
     Route: 048
  9. OLMETEC [Concomitant]
     Active Substance: OLMESARTAN MEDOXOMIL
     Route: 048
  10. OXYCODONE HYDROCHLORIDE. [Concomitant]
     Active Substance: OXYCODONE HYDROCHLORIDE
     Route: 048
  11. OXYCONTIN TR [Concomitant]
     Route: 048
  12. DOGMATYL [Concomitant]
     Active Substance: SULPIRIDE
     Route: 048
  13. CYRAMZA [Suspect]
     Active Substance: RAMUCIRUMAB
     Indication: GASTRIC CANCER RECURRENT
     Dosage: 400 MG, OTHER
     Route: 041
     Dates: start: 20180704, end: 20180801

REACTIONS (2)
  - Supraventricular tachycardia [Recovering/Resolving]
  - Atrial tachycardia [Unknown]

NARRATIVE: CASE EVENT DATE: 20180801
